FAERS Safety Report 6551126-8 (Version None)
Quarter: 2010Q1

REPORT INFORMATION
  Report Type: 
  Country: None (occurrence: None)
  Receive Date: 20100125
  Receipt Date: 20100114
  Transmission Date: 20100710
  Serious: Yes (Life-Threatening, Hospitalization, Other)
  Sender: FDA-Public Use
  Company Number: US-BAXTER-2008BH004484

PATIENT
  Age: 51 Year
  Sex: Male
  Weight: 74 kg

DRUGS (105)
  1. HEPARIN SODIUM INJECTION [Suspect]
     Indication: CORONARY ARTERY BYPASS
     Route: 065
     Dates: start: 20080206, end: 20080206
  2. HEPARIN SODIUM INJECTION [Suspect]
     Route: 065
     Dates: start: 20080213, end: 20080213
  3. HEPARIN SODIUM INJECTION [Suspect]
     Route: 058
     Dates: start: 20080209, end: 20080209
  4. HEPARIN SODIUM INJECTION [Suspect]
     Route: 065
     Dates: start: 20080215, end: 20080215
  5. HEPARIN SODIUM INJECTION [Suspect]
     Route: 058
     Dates: start: 20080210, end: 20080212
  6. HEPARIN SODIUM INJECTION [Suspect]
     Route: 065
     Dates: start: 20080218, end: 20080218
  7. HEPARIN SODIUM INJECTION [Suspect]
     Route: 065
     Dates: start: 20080206, end: 20080206
  8. HEPARIN SODIUM INJECTION [Suspect]
     Route: 065
     Dates: start: 20080307, end: 20080307
  9. HEPARIN SODIUM INJECTION [Suspect]
     Route: 065
     Dates: start: 20080229, end: 20080229
  10. HEPARIN SODIUM INJECTION [Suspect]
     Route: 065
     Dates: start: 20080220, end: 20080220
  11. HEPARIN SODIUM INJECTION [Suspect]
     Route: 065
     Dates: start: 20080207, end: 20080207
  12. NEXIUM                                  /UNK/ [Concomitant]
     Indication: DRUG USE FOR UNKNOWN INDICATION
     Route: 048
     Dates: end: 20080130
  13. RENAGEL [Concomitant]
     Indication: DRUG USE FOR UNKNOWN INDICATION
     Route: 065
  14. LASIX [Concomitant]
     Indication: DRUG USE FOR UNKNOWN INDICATION
     Route: 048
  15. COUMADIN [Concomitant]
     Indication: DRUG USE FOR UNKNOWN INDICATION
     Route: 065
  16. ZOCOR [Concomitant]
     Indication: DRUG USE FOR UNKNOWN INDICATION
     Route: 065
  17. AMIODARONE [Concomitant]
     Indication: DRUG USE FOR UNKNOWN INDICATION
     Route: 048
     Dates: start: 20080207, end: 20080211
  18. TOPROL-XL [Concomitant]
     Indication: DRUG USE FOR UNKNOWN INDICATION
     Route: 048
  19. DIOVAN HCT [Concomitant]
     Indication: DRUG USE FOR UNKNOWN INDICATION
     Route: 048
     Dates: end: 20080130
  20. TOPROL-XL [Concomitant]
     Route: 048
     Dates: end: 20080130
  21. PLENDIL [Concomitant]
     Indication: DRUG USE FOR UNKNOWN INDICATION
     Route: 048
     Dates: end: 20080130
  22. FLUDROCORTISONE [Concomitant]
     Indication: DRUG USE FOR UNKNOWN INDICATION
     Route: 048
     Dates: end: 20080130
  23. SENSIPAR [Concomitant]
     Indication: DRUG USE FOR UNKNOWN INDICATION
     Route: 048
     Dates: end: 20080130
  24. MANNITOL [Concomitant]
     Indication: DRUG USE FOR UNKNOWN INDICATION
     Route: 065
  25. LACTATED RINGER'S [Concomitant]
     Indication: DRUG USE FOR UNKNOWN INDICATION
     Route: 065
  26. VALIUM [Concomitant]
     Indication: DRUG USE FOR UNKNOWN INDICATION
     Route: 065
  27. FENTANYL [Concomitant]
     Indication: DRUG USE FOR UNKNOWN INDICATION
     Route: 065
  28. KETAMINE HCL [Concomitant]
     Indication: DRUG USE FOR UNKNOWN INDICATION
     Route: 065
  29. ETOMIDATE [Concomitant]
     Indication: DRUG USE FOR UNKNOWN INDICATION
     Route: 065
  30. SOLU-MEDROL [Concomitant]
     Indication: DRUG USE FOR UNKNOWN INDICATION
     Route: 065
  31. BENADRYL [Concomitant]
     Indication: DRUG USE FOR UNKNOWN INDICATION
     Route: 065
  32. CLONIDINE [Concomitant]
     Indication: DRUG USE FOR UNKNOWN INDICATION
     Route: 065
  33. MORPHINE [Concomitant]
     Indication: DRUG USE FOR UNKNOWN INDICATION
     Route: 065
  34. LEVOTHYROXINE SODIUM [Concomitant]
     Indication: DRUG USE FOR UNKNOWN INDICATION
     Route: 065
  35. INSULIN [Concomitant]
     Indication: DRUG USE FOR UNKNOWN INDICATION
     Route: 065
  36. NITROGLYCERIN [Concomitant]
     Indication: DRUG USE FOR UNKNOWN INDICATION
     Route: 065
  37. LIDOCAINE [Concomitant]
     Indication: DRUG USE FOR UNKNOWN INDICATION
     Route: 065
  38. EPINEPHRINE [Concomitant]
     Indication: DRUG USE FOR UNKNOWN INDICATION
     Route: 065
  39. PROTAMINE SULFATE [Concomitant]
     Indication: DRUG USE FOR UNKNOWN INDICATION
     Route: 042
  40. HYDRALAZINE [Concomitant]
     Indication: DRUG USE FOR UNKNOWN INDICATION
     Route: 048
     Dates: start: 20080131
  41. MUCOMYST                                /USA/ [Concomitant]
     Indication: DRUG USE FOR UNKNOWN INDICATION
     Route: 065
  42. ALLOPURINOL [Concomitant]
     Indication: DRUG USE FOR UNKNOWN INDICATION
     Route: 065
  43. PLETAL [Concomitant]
     Indication: DRUG USE FOR UNKNOWN INDICATION
     Route: 065
  44. AMOXICILLIN [Concomitant]
     Indication: BRONCHITIS
     Route: 065
  45. ACYCLOVIR [Concomitant]
     Indication: DRUG USE FOR UNKNOWN INDICATION
     Route: 048
     Dates: start: 20080215, end: 20080220
  46. ACETYLCYSTEINE [Concomitant]
     Indication: DRUG USE FOR UNKNOWN INDICATION
     Route: 048
     Dates: start: 20080131
  47. ECOTRIN [Concomitant]
     Indication: DRUG USE FOR UNKNOWN INDICATION
     Route: 048
     Dates: start: 20080207
  48. DIGOXIN [Concomitant]
     Indication: DRUG USE FOR UNKNOWN INDICATION
     Route: 042
     Dates: start: 20080209, end: 20080210
  49. DOCUSATE CALCIUM [Concomitant]
     Indication: DRUG USE FOR UNKNOWN INDICATION
     Route: 048
     Dates: start: 20080212
  50. ASPIRIN [Concomitant]
     Indication: DRUG USE FOR UNKNOWN INDICATION
     Route: 048
     Dates: start: 20080131
  51. CALCIUM GLUCONATE [Concomitant]
     Indication: DRUG USE FOR UNKNOWN INDICATION
     Route: 042
     Dates: start: 20080207, end: 20080207
  52. CARVEDILOL [Concomitant]
     Indication: DRUG USE FOR UNKNOWN INDICATION
     Route: 048
     Dates: start: 20080205
  53. FAMOTIDINE [Concomitant]
     Indication: DRUG USE FOR UNKNOWN INDICATION
     Route: 048
     Dates: start: 20080212
  54. FUROSEMIDE [Concomitant]
     Indication: DRUG USE FOR UNKNOWN INDICATION
     Route: 042
     Dates: start: 20080131
  55. HYDRALAZINE [Concomitant]
     Route: 048
     Dates: start: 20080201
  56. HYDRALAZINE [Concomitant]
     Route: 048
     Dates: start: 20080219
  57. HYDRALAZINE [Concomitant]
     Route: 048
     Dates: start: 20080212
  58. IPRATROPIUM [Concomitant]
     Indication: RESPIRATORY THERAPY
     Route: 055
     Dates: start: 20080208
  59. ISOSORBIDE MONONITRATE [Concomitant]
     Indication: DRUG USE FOR UNKNOWN INDICATION
     Route: 048
     Dates: start: 20080131
  60. MAGNESIUM SULFATE [Concomitant]
     Indication: DRUG USE FOR UNKNOWN INDICATION
     Route: 042
     Dates: start: 20080209, end: 20080209
  61. METOPROLOL [Concomitant]
     Indication: DRUG USE FOR UNKNOWN INDICATION
     Route: 048
     Dates: start: 20080131
  62. METOPROLOL [Concomitant]
     Route: 048
     Dates: start: 20080211
  63. MULTI-VITAMINS [Concomitant]
     Indication: DRUG USE FOR UNKNOWN INDICATION
     Route: 048
     Dates: start: 20080212
  64. LIQUIFILM TEARS OCULAR LUBRICANT [Concomitant]
     Indication: DRUG USE FOR UNKNOWN INDICATION
     Route: 047
     Dates: start: 20080206
  65. LIQUIFILM TEARS OCULAR LUBRICANT [Concomitant]
     Route: 047
     Dates: start: 20080207
  66. OMEPRAZOLE [Concomitant]
     Indication: DRUG USE FOR UNKNOWN INDICATION
     Route: 048
     Dates: start: 20080206, end: 20080207
  67. PIPERACILLIN W/TAZOBACTAM [Concomitant]
     Indication: DRUG USE FOR UNKNOWN INDICATION
     Route: 042
     Dates: start: 20080208
  68. POTASSIUM CHLORIDE [Concomitant]
     Indication: DRUG USE FOR UNKNOWN INDICATION
     Route: 048
     Dates: start: 20080212, end: 20080214
  69. PROTAMINE SULFATE [Concomitant]
     Route: 042
     Dates: start: 20080206, end: 20080206
  70. SIMVASTATIN [Concomitant]
     Indication: DRUG USE FOR UNKNOWN INDICATION
     Route: 048
     Dates: start: 20080131
  71. SODIUM CHLORIDE [Concomitant]
     Indication: DRUG USE FOR UNKNOWN INDICATION
     Route: 042
     Dates: start: 20080212
  72. VANCOMYCIN [Concomitant]
     Indication: DRUG USE FOR UNKNOWN INDICATION
     Route: 042
     Dates: start: 20080207, end: 20080208
  73. AMINOCAPROIC ACID [Concomitant]
     Indication: DRUG USE FOR UNKNOWN INDICATION
     Route: 042
     Dates: start: 20080206, end: 20080318
  74. CHLORHEXIDINE GLUCONATE [Concomitant]
     Indication: DRUG USE FOR UNKNOWN INDICATION
     Route: 048
     Dates: start: 20080205
  75. EPOETIN ALFA [Concomitant]
     Indication: DRUG USE FOR UNKNOWN INDICATION
     Route: 058
     Dates: start: 20080202, end: 20080202
  76. PROPRANOLOL [Concomitant]
     Indication: DRUG USE FOR UNKNOWN INDICATION
     Route: 042
     Dates: start: 20080211, end: 20080211
  77. ACETAMINOPHEN [Concomitant]
     Indication: HEADACHE
     Route: 048
     Dates: start: 20080201
  78. ACETAMINOPHEN [Concomitant]
     Indication: BODY TEMPERATURE
     Route: 048
     Dates: start: 20080208
  79. ALUMINIUM W/MAGNESIUM HYDROXIDE/SIMETICONE/ [Concomitant]
     Indication: DYSPEPSIA
     Route: 048
     Dates: start: 20080204
  80. ALUMINIUM W/MAGNESIUM HYDROXIDE/SIMETICONE/ [Concomitant]
     Route: 048
     Dates: start: 20080212
  81. ALBUMIN (HUMAN) [Concomitant]
     Indication: DRUG USE FOR UNKNOWN INDICATION
     Route: 042
     Dates: start: 20080206, end: 20080207
  82. ALBUTEROL [Concomitant]
     Indication: DRUG USE FOR UNKNOWN INDICATION
     Route: 055
     Dates: start: 20080222, end: 20080222
  83. AMIODARONE [Concomitant]
     Route: 042
     Dates: start: 20080211
  84. AMIODARONE [Concomitant]
     Indication: VENTRICULAR TACHYCARDIA
     Route: 042
     Dates: start: 20080131
  85. ATROPINE [Concomitant]
     Indication: BRADYCARDIA
     Route: 042
     Dates: start: 20080131
  86. ONDANSETRON [Concomitant]
     Indication: VOMITING
     Route: 042
     Dates: start: 20080207
  87. OXYCODONE [Concomitant]
     Indication: PAIN
     Route: 048
     Dates: start: 20080206
  88. POTASSIUM CHLORIDE [Concomitant]
     Route: 042
     Dates: start: 20080206
  89. POTASSIUM CHLORIDE [Concomitant]
     Route: 042
     Dates: start: 20080206
  90. POTASSIUM CHLORIDE [Concomitant]
     Route: 042
     Dates: start: 20080206
  91. SODIUM BICARBONATE [Concomitant]
     Indication: DRUG USE FOR UNKNOWN INDICATION
     Route: 065
     Dates: start: 20080204
  92. DOPAMINE HCL [Concomitant]
     Indication: DRUG USE FOR UNKNOWN INDICATION
     Dosage: DOSE UNIT:UNKNOWN
     Route: 065
     Dates: start: 20080206
  93. EPINEPHRINE [Concomitant]
     Route: 042
     Dates: start: 20080206, end: 20080207
  94. FUROSEMIDE [Concomitant]
     Route: 065
     Dates: start: 20080206, end: 20080207
  95. INSULIN [Concomitant]
     Route: 065
     Dates: start: 20080206, end: 20080208
  96. LACTATED RINGER'S [Concomitant]
     Route: 065
     Dates: start: 20080207
  97. LIDOCAINE [Concomitant]
     Route: 042
     Dates: start: 20080206, end: 20080209
  98. NITROGLYCERIN IN DEXTROSE 5% [Concomitant]
     Indication: DRUG USE FOR UNKNOWN INDICATION
     Route: 042
     Dates: start: 20080206, end: 20080207
  99. SODIUM NITROPRUSSIDE [Concomitant]
     Indication: DRUG USE FOR UNKNOWN INDICATION
     Route: 065
     Dates: start: 20080206, end: 20080207
  100. NOREPINEPHRINE [Concomitant]
     Indication: DRUG USE FOR UNKNOWN INDICATION
     Route: 065
     Dates: start: 20080206, end: 20080208
  101. NORMAL SALINE [Concomitant]
     Indication: DRUG USE FOR UNKNOWN INDICATION
     Route: 065
     Dates: start: 20080203, end: 20080204
  102. PHENYLEPHRINE [Concomitant]
     Indication: DRUG USE FOR UNKNOWN INDICATION
     Route: 042
     Dates: start: 20080207
  103. PROPOFOL [Concomitant]
     Indication: DRUG USE FOR UNKNOWN INDICATION
     Route: 065
     Dates: start: 20080206, end: 20080207
  104. TPN [Concomitant]
     Indication: DRUG USE FOR UNKNOWN INDICATION
     Route: 065
     Dates: start: 20080209, end: 20080211
  105. PAVULON [Concomitant]
     Indication: ANAESTHESIA
     Dates: start: 20080206, end: 20080206

REACTIONS (8)
  - COAGULATION FACTOR DEFICIENCY [None]
  - DECREASED APPETITE [None]
  - DIARRHOEA [None]
  - HAEMORRHAGE [None]
  - HEPARIN-INDUCED THROMBOCYTOPENIA [None]
  - HYPOTENSION [None]
  - PYREXIA [None]
  - RENAL FAILURE [None]
